FAERS Safety Report 8282748-4 (Version None)
Quarter: 2012Q2

REPORT INFORMATION
  Report Type: 
  Country: None (occurrence: None)
  Receive Date: 20120413
  Receipt Date: 20120403
  Transmission Date: 20120825
  Serious: Yes (Hospitalization)
  Sender: FDA-Public Use
  Company Number: US-ROCHE-1056103

PATIENT
  Sex: Female
  Weight: 83.536 kg

DRUGS (8)
  1. VICTRELIS [Concomitant]
     Indication: HEPATITIS C
     Route: 048
     Dates: start: 20110920
  2. ESTROGEN [Concomitant]
     Indication: OESTROGEN DEFICIENCY
     Route: 048
  3. ALLOPURINOL [Concomitant]
     Indication: GOUT
     Route: 048
  4. PEGASYS [Suspect]
     Indication: HEPATITIS C
     Route: 065
     Dates: start: 20110920
  5. COPEGUS [Suspect]
     Indication: HEPATITIS C
     Dosage: DOSE CHANGED
     Route: 048
     Dates: start: 20110920
  6. BOCEPREVIR [Suspect]
     Indication: HEPATITIS C
  7. BENAZEPRIL HYDROCHLORIDE [Concomitant]
     Indication: HYPERTENSION
     Route: 048
  8. ATENOLOL [Suspect]
     Indication: HYPERTENSION
     Route: 048

REACTIONS (5)
  - ANAEMIA [None]
  - ASTHENIA [None]
  - PAIN [None]
  - TRANSFUSION [None]
  - URINARY TRACT INFECTION [None]
